FAERS Safety Report 12907386 (Version 3)
Quarter: 2016Q4

REPORT INFORMATION
  Report Type: Spontaneous
  Country: JP (occurrence: JP)
  Receive Date: 20161103
  Receipt Date: 20161220
  Transmission Date: 20170207
  Serious: Yes (Death, Other)
  Sender: FDA-Public Use
  Company Number: JP-ELI_LILLY_AND_COMPANY-JP201610009291

PATIENT
  Age: 66 Year
  Sex: Male

DRUGS (2)
  1. CYRAMZA [Suspect]
     Active Substance: RAMUCIRUMAB
     Indication: SQUAMOUS CELL CARCINOMA OF LUNG
     Dosage: 10 MG/KG, SINGLE
     Route: 042
     Dates: start: 20160929, end: 20160929
  2. DOCETAXEL. [Suspect]
     Active Substance: DOCETAXEL
     Indication: SQUAMOUS CELL CARCINOMA OF LUNG
     Dosage: 60 MG/M2, SINGLE
     Route: 042
     Dates: start: 20160929, end: 20160929

REACTIONS (5)
  - Disseminated intravascular coagulation [Recovered/Resolved]
  - Enteritis infectious [Unknown]
  - Diarrhoea [Unknown]
  - Pneumonia aspiration [Fatal]
  - Febrile neutropenia [Recovered/Resolved]

NARRATIVE: CASE EVENT DATE: 201610
